FAERS Safety Report 16572483 (Version 10)
Quarter: 2021Q3

REPORT INFORMATION
  Report Type: Report from Study
  Country: GB (occurrence: GB)
  Receive Date: 20190715
  Receipt Date: 20210824
  Transmission Date: 20211014
  Serious: Yes (Hospitalization, Other)
  Sender: FDA-Public Use
  Company Number: GB-MYLANLABS-2019M1064692

PATIENT
  Age: 60 Year
  Sex: Female

DRUGS (54)
  1. METOCLOPRAMIDE. [Concomitant]
     Active Substance: METOCLOPRAMIDE
     Dosage: 10 MILLIGRAM
     Route: 048
     Dates: start: 20160823, end: 20160906
  2. PARACETAMOL [Concomitant]
     Active Substance: ACETAMINOPHEN
     Indication: PRODUCT USED FOR UNKNOWN INDICATION
     Dosage: 500 MG, 4X/DAY
     Route: 048
     Dates: end: 20160925
  3. ENOXAPARIN [Concomitant]
     Active Substance: ENOXAPARIN
     Indication: PRODUCT USED FOR UNKNOWN INDICATION
     Dosage: 40 MILLIGRAM
     Route: 058
     Dates: start: 20160817, end: 20160913
  4. VANCOMYCIN [Concomitant]
     Active Substance: VANCOMYCIN
     Indication: NEUTROPENIA
     Dosage: 1500 MILLIGRAM
     Route: 042
     Dates: start: 20160912, end: 20160912
  5. DEXAMETHASONE. [Concomitant]
     Active Substance: DEXAMETHASONE
     Dosage: 8 MILLIGRAM, QW
     Route: 042
     Dates: start: 20160823, end: 20160906
  6. HYDROCORTISONE. [Concomitant]
     Active Substance: HYDROCORTISONE
     Indication: PRODUCT USED FOR UNKNOWN INDICATION
     Dosage: UNK
     Route: 061
     Dates: start: 20160817, end: 20160913
  7. CHLORHEXIDINE GLUCONATE. [Concomitant]
     Active Substance: CHLORHEXIDINE GLUCONATE
     Dosage: 10 ML, 2X/DAY (EVERY 0.5 DAYS), 10 MILLILITER, BID
     Route: 044
     Dates: start: 20160913, end: 20160925
  8. BEPANTHENE PLUS [Concomitant]
     Indication: PRODUCT USED FOR UNKNOWN INDICATION
     Dosage: UNK
     Route: 061
     Dates: start: 20160913, end: 20160914
  9. PACLITAXEL. [Suspect]
     Active Substance: PACLITAXEL
     Dosage: 84 MILLIGRAM, QW
     Route: 042
     Dates: start: 20160906, end: 20160906
  10. PEPTAC                             /01521901/ [Concomitant]
     Active Substance: CALCIUM CARBONATE\SODIUM ALGINATE\SODIUM BICARBONATE
     Dosage: 10 MILLILITER, PRN
     Route: 048
     Dates: end: 20160106
  11. VANCOMYCIN [Concomitant]
     Active Substance: VANCOMYCIN
     Dosage: UNK
     Route: 042
     Dates: start: 20160912, end: 20160913
  12. VORHYALURONIDASE ALFA [Suspect]
     Active Substance: HYALURONIDASE (HUMAN RECOMBINANT)
     Indication: HER2 POSITIVE BREAST CANCER
     Dosage: 600 MG, EVERY 3 WEEKS
     Route: 058
     Dates: start: 20151124, end: 20160802
  13. TAXOL [Suspect]
     Active Substance: PACLITAXEL
     Dosage: TAXOL
     Route: 042
     Dates: start: 20160906, end: 20160906
  14. ACICLOVIR [Concomitant]
     Active Substance: ACYCLOVIR
     Dosage: 5 PERCENT, 5X/DAY
     Route: 061
     Dates: start: 20160913, end: 20160925
  15. TAXOL [Suspect]
     Active Substance: PACLITAXEL
     Dosage: 141 MILLIGRAM
     Route: 042
     Dates: start: 20150901, end: 20151006
  16. PARACETAMOL [Concomitant]
     Active Substance: ACETAMINOPHEN
     Dosage: 500 MILLIGRAM
     Route: 048
     Dates: end: 20160925
  17. ACICLOVIR [Concomitant]
     Active Substance: ACYCLOVIR
     Indication: PRODUCT USED FOR UNKNOWN INDICATION
     Dosage: 25 PERCENT, QD
     Route: 061
     Dates: start: 20160913, end: 20160925
  18. ENALAPRIL [Concomitant]
     Active Substance: ENALAPRIL
     Indication: PRODUCT USED FOR UNKNOWN INDICATION
     Dosage: 10 MILLIGRAM, QD
     Route: 048
     Dates: start: 20060823, end: 20160925
  19. TAZOCIN [Concomitant]
     Active Substance: PIPERACILLIN SODIUM\TAZOBACTAM SODIUM
     Dosage: 4.5 GRAM, Q4D
     Route: 042
     Dates: start: 20160911, end: 20160913
  20. FRUSEMIDE                          /00032601/ [Concomitant]
     Active Substance: FUROSEMIDE
     Indication: ASCITES
     Dosage: 20 MILLIGRAM, QD
     Route: 048
     Dates: start: 20160817, end: 20160925
  21. TAXOL [Suspect]
     Active Substance: PACLITAXEL
     Indication: HER2 POSITIVE BREAST CANCER
     Dosage: 111 MILLIGRAM, QW
     Route: 042
     Dates: start: 20151006, end: 20151215
  22. RANITIDINE. [Concomitant]
     Active Substance: RANITIDINE
     Dosage: 50 MILLIGRAM, QW
     Route: 042
     Dates: start: 20160906, end: 20160906
  23. METOCLOPRAMIDE. [Concomitant]
     Active Substance: METOCLOPRAMIDE
     Indication: PRODUCT USED FOR UNKNOWN INDICATION
     Dosage: 10 MILLIGRAM
     Route: 048
     Dates: start: 20150908, end: 20151215
  24. ONDANSETRON [Concomitant]
     Active Substance: ONDANSETRON
     Indication: PRODUCT USED FOR UNKNOWN INDICATION
     Dosage: 8 MILLIGRAM, QW
     Route: 048
     Dates: start: 20151006, end: 20151215
  25. ONDANSETRON [Concomitant]
     Active Substance: ONDANSETRON
     Dosage: 8 MILLIGRAM, QW
     Route: 048
     Dates: start: 20150823, end: 20160906
  26. CHLORPHENAMINE [Concomitant]
     Active Substance: CHLORPHENIRAMINE MALEATE
     Dosage: 10 MILLIGRAM, QW
     Route: 042
     Dates: start: 20160906, end: 20160906
  27. FLUCONAZOLE. [Concomitant]
     Active Substance: FLUCONAZOLE
     Dosage: UNK, QD
     Route: 048
     Dates: start: 20160918, end: 201609
  28. HYDROCORTISONE. [Concomitant]
     Active Substance: HYDROCORTISONE
     Dosage: 100 MILLIGRAM, QW
     Route: 042
     Dates: start: 20160906, end: 20160906
  29. IBUPROFEN. [Concomitant]
     Active Substance: IBUPROFEN
     Indication: PRODUCT USED FOR UNKNOWN INDICATION
     Dosage: UNK
     Route: 065
     Dates: start: 20160925, end: 20160925
  30. OMEPRAZOLE. [Concomitant]
     Active Substance: OMEPRAZOLE
     Indication: PRODUCT USED FOR UNKNOWN INDICATION
     Dosage: 20 MILLIGRAM, QD
     Route: 048
     Dates: end: 20160106
  31. DEXAMETHASONE. [Concomitant]
     Active Substance: DEXAMETHASONE
     Indication: ASCITES
     Dosage: 8 MILLIGRAM, QD
     Route: 048
     Dates: start: 20160817, end: 20160925
  32. EPIRUBICIN [Suspect]
     Active Substance: EPIRUBICIN
     Indication: HER2 POSITIVE BREAST CANCER
     Dosage: 50 MILLIGRAM, QW
     Route: 042
     Dates: start: 20160823, end: 20160830
  33. PACLITAXEL. [Suspect]
     Active Substance: PACLITAXEL
     Indication: HER2 POSITIVE BREAST CANCER
     Dosage: 141 MILLIGRAM, QW
     Route: 042
     Dates: start: 20150901, end: 20151006
  34. PACLITAXEL. [Suspect]
     Active Substance: PACLITAXEL
     Dosage: 111 MILLIGRAM, QW (PLANNED NUMBER OF CYCLES COMPLETED)
     Route: 042
     Dates: start: 20151006, end: 20151215
  35. TRASTUZUMAB. [Suspect]
     Active Substance: TRASTUZUMAB
     Dosage: 600 MILLIGRAM, 3XW
     Route: 058
     Dates: start: 20151124, end: 20160823
  36. TAXOL [Suspect]
     Active Substance: PACLITAXEL
     Indication: HER2 POSITIVE BREAST CANCER
     Dosage: TAXOL
     Route: 042
     Dates: start: 20150901, end: 20151006
  37. RANITIDINE. [Concomitant]
     Active Substance: RANITIDINE
     Dosage: 50 MILLIGRAM, QW
     Route: 042
     Dates: start: 20150908, end: 20151215
  38. DEXAMETHASONE. [Concomitant]
     Active Substance: DEXAMETHASONE
     Dosage: 8 MILLIGRAM, QW
     Route: 042
     Dates: start: 20150908, end: 20151215
  39. CHLORHEXIDINE GLUCONATE. [Concomitant]
     Active Substance: CHLORHEXIDINE GLUCONATE
     Indication: PRODUCT USED FOR UNKNOWN INDICATION
     Dosage: 20 MILLILITER, QD
     Route: 044
     Dates: start: 20160913, end: 20160925
  40. CHLORPHENAMINE [Concomitant]
     Active Substance: CHLORPHENIRAMINE MALEATE
     Indication: PRODUCT USED FOR UNKNOWN INDICATION
     Dosage: 10 MILLIGRAM, QW
     Route: 042
     Dates: start: 20150908, end: 20151215
  41. FLUCONAZOLE. [Concomitant]
     Active Substance: FLUCONAZOLE
     Indication: PRODUCT USED FOR UNKNOWN INDICATION
     Dosage: 50 MILLIGRAM, QD
     Route: 048
     Dates: start: 20160908, end: 201609
  42. FLUCONAZOLE. [Concomitant]
     Active Substance: FLUCONAZOLE
     Dosage: 500 MILLIGRAM, QD
     Route: 048
     Dates: start: 20160912, end: 20160912
  43. GABAPENTIN. [Concomitant]
     Active Substance: GABAPENTIN
     Dosage: 900 MILLIGRAM, QD
     Route: 048
     Dates: start: 20160118, end: 20160925
  44. TRASTUZUMAB. [Suspect]
     Active Substance: TRASTUZUMAB
     Indication: HER2 POSITIVE BREAST CANCER
     Dosage: 600 MILLIGRAM, Q3W
     Route: 058
     Dates: start: 20151124, end: 20160802
  45. HYALURONIDASE                      /00117002/ [Suspect]
     Active Substance: HYALURONIDASE
     Indication: HER2 POSITIVE BREAST CANCER
     Dosage: 600 MG, EVERY 3 WEEKS
     Route: 058
     Dates: start: 20151124, end: 20160802
  46. TAZOCIN [Concomitant]
     Active Substance: PIPERACILLIN SODIUM\TAZOBACTAM SODIUM
     Indication: NEUTROPENIA
     Dosage: 18 GRAM, QD
     Route: 042
     Dates: start: 20160911, end: 20160913
  47. HYALURONIDASE                      /00117002/ [Suspect]
     Active Substance: HYALURONIDASE
     Dosage: UNK
     Route: 065
  48. TAXOL [Suspect]
     Active Substance: PACLITAXEL
     Dosage: 84 MILLIGRAM TAXOL
     Route: 042
     Dates: start: 20160906
  49. GENTAMYCIN                         /00047101/ [Concomitant]
     Active Substance: GENTAMICIN
     Indication: PRODUCT USED FOR UNKNOWN INDICATION
     Dosage: 320 MILLIGRAM, QD
     Route: 042
     Dates: start: 20160825, end: 20160827
  50. ENALAPRIL [Concomitant]
     Active Substance: ENALAPRIL
     Dosage: 10 MILLIGRAM
     Route: 048
     Dates: start: 20060823, end: 20160901
  51. BEPANTHEN                          /00178901/ [Concomitant]
     Active Substance: DEXPANTHENOL
     Dosage: UNK
     Route: 061
     Dates: start: 20160913, end: 20160914
  52. CO?AMOXICLAV                       /01000301/ [Concomitant]
     Active Substance: AMOXICILLIN\CLAVULANATE POTASSIUM
     Dosage: 500/125 MG, EVERY 0.33DAY
     Route: 048
     Dates: start: 20150922, end: 20151004
  53. DEXPANTHENOL. [Concomitant]
     Active Substance: DEXPANTHENOL
     Indication: PRODUCT USED FOR UNKNOWN INDICATION
     Dosage: UNK
     Route: 061
     Dates: start: 20160913, end: 20160914
  54. ACIDEX                             /01521901/ [Concomitant]
     Active Substance: CALCIUM CARBONATE\SODIUM ALGINATE\SODIUM BICARBONATE
     Indication: PRODUCT USED FOR UNKNOWN INDICATION
     Dosage: 10 MILLILITER, PRN
     Route: 048
     Dates: end: 20160106

REACTIONS (13)
  - Aspartate aminotransferase increased [Recovered/Resolved with Sequelae]
  - White blood cell count decreased [Recovered/Resolved]
  - Neutropenia [Recovered/Resolved with Sequelae]
  - Nail infection [Unknown]
  - Muscle strain [Recovered/Resolved]
  - Neuropathy peripheral [Unknown]
  - Ascites [Recovered/Resolved with Sequelae]
  - Blood bilirubin increased [Unknown]
  - Alanine aminotransferase increased [Recovered/Resolved with Sequelae]
  - Blood alkaline phosphatase increased [Not Recovered/Not Resolved]
  - Diarrhoea [Recovered/Resolved]
  - Epigastric discomfort [Recovered/Resolved]
  - Condition aggravated [Recovered/Resolved with Sequelae]

NARRATIVE: CASE EVENT DATE: 20160118
